FAERS Safety Report 9745743 (Version 3)
Quarter: 2014Q1

REPORT INFORMATION
  Report Type: Spontaneous
  Country: US (occurrence: US)
  Receive Date: 20131211
  Receipt Date: 20140115
  Transmission Date: 20141002
  Serious: Yes (Other)
  Sender: FDA-Public Use
  Company Number: US-TEVA-449477USA

PATIENT
  Age: 29 Year
  Sex: Female
  Weight: 97.61 kg

DRUGS (2)
  1. PARAGARD 380A [Suspect]
     Indication: CONTRACEPTION
     Route: 015
     Dates: start: 20131028, end: 20131028
  2. IUD [Suspect]
     Indication: CONTRACEPTION
     Route: 015

REACTIONS (2)
  - Embedded device [Recovered/Resolved]
  - Medical device complication [Recovered/Resolved]
